FAERS Safety Report 15010815 (Version 1)
Quarter: 2018Q2

REPORT INFORMATION
  Report Type: Spontaneous
  Country: US (occurrence: US)
  Receive Date: 20180529
  Receipt Date: 20180529
  Transmission Date: 20180711
  Serious: No
  Sender: FDA-Public Use
  Company Number: None

PATIENT
  Sex: Female

DRUGS (1)
  1. PENLAC [Suspect]
     Active Substance: CICLOPIROX

REACTIONS (4)
  - Erythema [None]
  - Burning sensation [None]
  - Hypersensitivity [None]
  - Inflammation [None]
